FAERS Safety Report 17142280 (Version 1)
Quarter: 2019Q4

REPORT INFORMATION
  Report Type: Spontaneous
  Country: US (occurrence: US)
  Receive Date: 20191211
  Receipt Date: 20191211
  Transmission Date: 20200122
  Serious: Yes (Hospitalization)
  Sender: FDA-Public Use
  Company Number: US-JUBILANT CADISTA PHARMACEUTICALS-2019JUB00294

PATIENT
  Age: 44 Year
  Sex: Female
  Weight: 108.84 kg

DRUGS (8)
  1. VALTREX [Concomitant]
     Active Substance: VALACYCLOVIR HYDROCHLORIDE
  2. ALBUTEROL HFA [Concomitant]
     Active Substance: ALBUTEROL SULFATE
  3. MUCINEX [Concomitant]
     Active Substance: GUAIFENESIN
  4. CLARITIN [Concomitant]
     Active Substance: LORATADINE
  5. GABAPENTIN. [Concomitant]
     Active Substance: GABAPENTIN
  6. METHYLPREDNISOLONE. [Suspect]
     Active Substance: METHYLPREDNISOLONE
     Indication: ARTHROPOD STING
     Dosage: UNK, ^DESCENDING DOSE PAK^
     Route: 048
     Dates: start: 20190720, end: 20190723
  7. QVAR [Concomitant]
     Active Substance: BECLOMETHASONE DIPROPIONATE
  8. FLONASE [Concomitant]
     Active Substance: FLUTICASONE PROPIONATE

REACTIONS (3)
  - Erythema [Unknown]
  - Allergic reaction to excipient [Recovering/Resolving]
  - Skin discomfort [Unknown]

NARRATIVE: CASE EVENT DATE: 201907
